FAERS Safety Report 17870604 (Version 5)
Quarter: 2020Q4

REPORT INFORMATION
  Report Type: Spontaneous
  Country: US (occurrence: US)
  Receive Date: 20200608
  Receipt Date: 20201012
  Transmission Date: 20210113
  Serious: No
  Sender: FDA-Public Use
  Company Number: US-PFIZER INC-2019352836

PATIENT
  Age: 72 Year
  Sex: Female

DRUGS (3)
  1. LYRICA [Suspect]
     Active Substance: PREGABALIN
     Indication: MIXED CONNECTIVE TISSUE DISEASE
     Dosage: 50 MG, 2X/DAY (TAKE 1 CAPSULE (50MG) BY MOUTH EVERY 12 HOURS)
     Route: 048
  2. LYRICA [Suspect]
     Active Substance: PREGABALIN
     Indication: OVERLAP SYNDROME
     Dosage: 150 MG, DAILY (50 MG; 1 CAPSULE AM AND 2 CAPSULES HS)
     Route: 048
     Dates: start: 20200914
  3. LYRICA [Suspect]
     Active Substance: PREGABALIN
     Indication: RESTLESS LEGS SYNDROME
     Dosage: 75 MG, 2X/DAY (ONE CAPSULE, EVERY 12 HOURS)
     Route: 048

REACTIONS (4)
  - Pain in extremity [Unknown]
  - Product use in unapproved indication [Unknown]
  - Confusional state [Unknown]
  - Off label use [Unknown]
